FAERS Safety Report 9124307 (Version 2)
Quarter: 2013Q1

REPORT INFORMATION
  Report Type: Spontaneous
  Country: US (occurrence: US)
  Receive Date: 20130227
  Receipt Date: 20130328
  Transmission Date: 20140127
  Serious: No
  Sender: FDA-Public Use
  Company Number: US-PFIZER INC-2013070504

PATIENT
  Age: 67 Year
  Sex: Female

DRUGS (1)
  1. XELJANZ [Suspect]
     Dosage: 5 MG DAILY
     Route: 048
     Dates: start: 20130131, end: 20130214

REACTIONS (2)
  - Chest pain [Unknown]
  - Gastrooesophageal reflux disease [Recovered/Resolved]
